FAERS Safety Report 16246705 (Version 1)
Quarter: 2019Q2

REPORT INFORMATION
  Report Type: Report from Study
  Country: SE (occurrence: SE)
  Receive Date: 20190427
  Receipt Date: 20190427
  Transmission Date: 20190711
  Serious: Yes (Other)
  Sender: FDA-Public Use
  Company Number: SE-ROCHE-2308379

PATIENT

DRUGS (3)
  1. CAPECITABINE. [Suspect]
     Active Substance: CAPECITABINE
     Indication: BREAST CANCER
     Route: 065
  2. CYCLOPHOSPHAMIDE. [Suspect]
     Active Substance: CYCLOPHOSPHAMIDE
     Indication: BREAST CANCER
     Route: 065
  3. BEVACIZUMAB. [Suspect]
     Active Substance: BEVACIZUMAB
     Indication: BREAST CANCER
     Route: 042

REACTIONS (2)
  - Proteinuria [Unknown]
  - Diarrhoea [Unknown]
